FAERS Safety Report 12250361 (Version 3)
Quarter: 2017Q2

REPORT INFORMATION
  Report Type: Report from Study
  Country: JP (occurrence: JP)
  Receive Date: 20160408
  Receipt Date: 20170404
  Transmission Date: 20170830
  Serious: Yes (Other)
  Sender: FDA-Public Use
  Company Number: PHJP2016JP008173

PATIENT
  Age: 32 Year
  Sex: Male

DRUGS (69)
  1. CERTICAN [Suspect]
     Active Substance: EVEROLIMUS
     Dosage: 1.0 MG, UNK
     Route: 048
     Dates: start: 20101022, end: 20101111
  2. PROGRAF [Suspect]
     Active Substance: TACROLIMUS\TACROLIMUS ANHYDROUS
     Dosage: 1 MG, UNK
     Route: 048
     Dates: start: 20170111, end: 20170118
  3. NESINA [Concomitant]
     Active Substance: ALOGLIPTIN BENZOATE
     Dosage: 25 MG, UNK
     Route: 048
     Dates: start: 20161231
  4. SELARA [Concomitant]
     Active Substance: EPLERENONE
     Indication: HYPOKALAEMIA
     Dosage: 25 MG, UNK
     Route: 048
  5. CERTICAN [Suspect]
     Active Substance: EVEROLIMUS
     Dosage: 1 MG, QD
     Route: 048
     Dates: start: 20160519, end: 20160728
  6. PROGRAF [Suspect]
     Active Substance: TACROLIMUS\TACROLIMUS ANHYDROUS
     Dosage: 0.8 MG, UNK
     Route: 048
     Dates: start: 20151007, end: 20151014
  7. PROGRAF [Suspect]
     Active Substance: TACROLIMUS\TACROLIMUS ANHYDROUS
     Dosage: 0.8 MG, UNK
     Route: 048
     Dates: start: 20160121, end: 20160217
  8. BAKTAR [Concomitant]
     Active Substance: SULFAMETHOXAZOLE\TRIMETHOPRIM
     Indication: ANTIFUNGAL PROPHYLAXIS
     Dosage: 1 DF, ON MONDAYS, WEDNESDAYS, AND FRIDAYS
     Route: 048
     Dates: start: 20071017
  9. GLYCORAN [Concomitant]
     Active Substance: GLYCERIN
     Dosage: 750 MG, UNK
     Route: 048
     Dates: start: 20101208
  10. LIPITOR [Concomitant]
     Active Substance: ATORVASTATIN CALCIUM
     Indication: PROPHYLAXIS
     Dosage: 10 MG, UNK
     Route: 048
     Dates: start: 20071016
  11. DEPAKENE [Concomitant]
     Active Substance: VALPROIC ACID
     Indication: DEPRESSION
     Dosage: 600 MG, UNK
     Route: 048
     Dates: start: 20130913
  12. AMARYL [Concomitant]
     Active Substance: GLIMEPIRIDE
     Dosage: 1 MG, UNK
     Route: 048
     Dates: start: 20150604, end: 20150730
  13. NICORANDIL [Concomitant]
     Active Substance: NICORANDIL
     Indication: CORONARY ARTERY STENOSIS
     Dosage: 15 MG, UNK
     Route: 048
     Dates: start: 20150730, end: 20150823
  14. CERTICAN [Suspect]
     Active Substance: EVEROLIMUS
     Indication: HEART TRANSPLANT
     Dosage: 1.5 MG, QD
     Route: 048
     Dates: start: 20100922, end: 20101012
  15. CERTICAN [Suspect]
     Active Substance: EVEROLIMUS
     Dosage: 1.25 MG, UNK
     Route: 048
     Dates: start: 20101013, end: 20101021
  16. CERTICAN [Suspect]
     Active Substance: EVEROLIMUS
     Dosage: 1.25 MG, QD
     Route: 048
     Dates: start: 20160729, end: 20161116
  17. PROGRAF [Suspect]
     Active Substance: TACROLIMUS\TACROLIMUS ANHYDROUS
     Indication: IMMUNOSUPPRESSANT DRUG THERAPY
     Dosage: 2 MG, UNK
     Route: 048
     Dates: start: 20100806, end: 20100923
  18. PROGRAF [Suspect]
     Active Substance: TACROLIMUS\TACROLIMUS ANHYDROUS
     Dosage: 1.6 MG, UNK
     Route: 048
     Dates: start: 20100929, end: 20101003
  19. PROGRAF [Suspect]
     Active Substance: TACROLIMUS\TACROLIMUS ANHYDROUS
     Dosage: 1.3 MG, UNK
     Route: 048
     Dates: start: 20101004, end: 20101004
  20. PROGRAF [Suspect]
     Active Substance: TACROLIMUS\TACROLIMUS ANHYDROUS
     Dosage: 0.9 MG, UNK
     Route: 048
     Dates: start: 20101210
  21. PROGRAF [Suspect]
     Active Substance: TACROLIMUS\TACROLIMUS ANHYDROUS
     Dosage: 1.1 MG, UNK
     Route: 048
     Dates: start: 20161231, end: 20161231
  22. GLYCORAN [Concomitant]
     Active Substance: GLYCERIN
     Indication: DIABETES MELLITUS
     Dosage: 500 MG, UNK
     Route: 048
     Dates: start: 20100722, end: 20101207
  23. BONALON [Concomitant]
     Active Substance: ALENDRONATE SODIUM
     Indication: OSTEOPOROSIS
     Dosage: 35 MG, QW
     Route: 048
     Dates: start: 20071016
  24. METGLUCO [Concomitant]
     Active Substance: METFORMIN HYDROCHLORIDE
     Dosage: 2250 MG, UNK
     Route: 048
     Dates: start: 20161231
  25. SELENICA R [Concomitant]
     Active Substance: VALPROATE SODIUM
     Indication: PRODUCT USED FOR UNKNOWN INDICATION
     Dosage: 800 MG, UNK
     Route: 048
  26. CERTICAN [Suspect]
     Active Substance: EVEROLIMUS
     Dosage: 0.75 MG, QD
     Route: 048
     Dates: start: 20140918, end: 20141007
  27. PROGRAF [Suspect]
     Active Substance: TACROLIMUS\TACROLIMUS ANHYDROUS
     Dosage: 0.8 MG, UNK
     Route: 048
     Dates: start: 20140918, end: 20141007
  28. PROGRAF [Suspect]
     Active Substance: TACROLIMUS\TACROLIMUS ANHYDROUS
     Dosage: 0.9 MG, UNK
     Route: 048
     Dates: start: 20150917, end: 20151006
  29. PROGRAF [Suspect]
     Active Substance: TACROLIMUS\TACROLIMUS ANHYDROUS
     Dosage: 0.6 MG, UNK
     Route: 048
     Dates: start: 20151015, end: 20160120
  30. PROGRAF [Suspect]
     Active Substance: TACROLIMUS\TACROLIMUS ANHYDROUS
     Dosage: 1 MG, UNK
     Route: 048
     Dates: start: 20161220, end: 20161221
  31. PROGRAF [Suspect]
     Active Substance: TACROLIMUS\TACROLIMUS ANHYDROUS
     Dosage: 0.9 MG, UNK
     Route: 048
     Dates: start: 20170103, end: 20170103
  32. PROGRAF [Suspect]
     Active Substance: TACROLIMUS\TACROLIMUS ANHYDROUS
     Dosage: 0.7 MG, UNK
     Route: 048
     Dates: start: 20170104, end: 20170104
  33. PROGRAF [Suspect]
     Active Substance: TACROLIMUS\TACROLIMUS ANHYDROUS
     Dosage: 0.8 MG, UNK
     Route: 048
     Dates: start: 20170105, end: 20170110
  34. MYCOPHENOLATE [Concomitant]
     Active Substance: MYCOPHENOLIC ACID
     Dosage: 2000 MG, UNK
     Route: 048
     Dates: start: 20161220, end: 20170125
  35. AMARYL [Concomitant]
     Active Substance: GLIMEPIRIDE
     Indication: DIABETES MELLITUS
     Dosage: 0.5 MG, UNK
     Route: 048
     Dates: start: 20140917, end: 20150603
  36. EFIENT [Concomitant]
     Active Substance: PRASUGREL HYDROCHLORIDE
     Indication: CORONARY ARTERY STENOSIS
     Dosage: 3.75 MG, UNK
     Route: 048
     Dates: start: 20150730, end: 20160310
  37. CERTICAN [Suspect]
     Active Substance: EVEROLIMUS
     Dosage: 1.5 MG, QD
     Route: 048
     Dates: start: 20161117, end: 20161214
  38. CERTICAN [Suspect]
     Active Substance: EVEROLIMUS
     Dosage: UNK
     Route: 048
     Dates: start: 20170105
  39. PROGRAF [Suspect]
     Active Substance: TACROLIMUS\TACROLIMUS ANHYDROUS
     Dosage: 1.8 MG, UNK
     Route: 048
     Dates: start: 20100924, end: 20100928
  40. PROGRAF [Suspect]
     Active Substance: TACROLIMUS\TACROLIMUS ANHYDROUS
     Dosage: 1.0 MG, UNK
     Route: 048
     Dates: start: 20101203, end: 20101209
  41. PROGRAF [Suspect]
     Active Substance: TACROLIMUS\TACROLIMUS ANHYDROUS
     Dosage: 1.1 MG, UNK
     Route: 048
     Dates: start: 20161222, end: 20161223
  42. BAYASPIRIN [Concomitant]
     Active Substance: ASPIRIN
     Indication: PROPHYLAXIS
     Dosage: 100 MG, UNK
     Route: 048
     Dates: start: 20071016, end: 20161222
  43. LUPRAC [Concomitant]
     Active Substance: TORSEMIDE
     Indication: RENAL IMPAIRMENT
     Dosage: 8 MG, UNK
     Route: 048
     Dates: start: 20071016
  44. LANDSEN [Concomitant]
     Active Substance: CLONAZEPAM
     Indication: DEPRESSION
     Dosage: 0.5 MG, PRN
     Route: 048
  45. LANTUS [Concomitant]
     Active Substance: INSULIN GLARGINE
     Indication: DIABETES MELLITUS
     Dosage: Q.S.
     Route: 058
     Dates: start: 20151216, end: 20161224
  46. RYZODEG 70/30 [Concomitant]
     Active Substance: INSULIN ASPART\INSULIN DEGLUDEC
     Indication: DIABETES MELLITUS
     Dosage: Q.S.
     Route: 058
     Dates: start: 20161230
  47. PROGRAF [Suspect]
     Active Substance: TACROLIMUS\TACROLIMUS ANHYDROUS
     Dosage: 1.2 MG, UNK
     Route: 048
     Dates: start: 20101005, end: 20101202
  48. PROGRAF [Suspect]
     Active Substance: TACROLIMUS\TACROLIMUS ANHYDROUS
     Dosage: 0.8 MG, UNK
     Route: 048
     Dates: start: 20141129, end: 20150916
  49. PROGRAF [Suspect]
     Active Substance: TACROLIMUS\TACROLIMUS ANHYDROUS
     Dosage: 0.6 MG, UNK
     Route: 048
     Dates: start: 20160218, end: 20161219
  50. PROGRAF [Suspect]
     Active Substance: TACROLIMUS\TACROLIMUS ANHYDROUS
     Dosage: 1 MG, UNK
     Route: 048
     Dates: start: 20170101, end: 20170102
  51. NESINA [Concomitant]
     Active Substance: ALOGLIPTIN BENZOATE
     Indication: DIABETES MELLITUS
     Dosage: 12.5 MG, UNK
     Route: 048
     Dates: start: 20101214
  52. BAYASPIRIN [Concomitant]
     Active Substance: ASPIRIN
     Dosage: 100 MG, UNK
     Route: 048
     Dates: start: 20161230
  53. AMARYL [Concomitant]
     Active Substance: GLIMEPIRIDE
     Dosage: 2 MG, UNK
     Route: 048
     Dates: start: 20150731, end: 20161219
  54. CERTICAN [Suspect]
     Active Substance: EVEROLIMUS
     Dosage: 1 MG, QD
     Route: 048
     Dates: start: 20141008, end: 20160420
  55. CERTICAN [Suspect]
     Active Substance: EVEROLIMUS
     Dosage: 1.25 MG, QD
     Route: 048
     Dates: start: 20160421, end: 20160518
  56. PROGRAF [Suspect]
     Active Substance: TACROLIMUS\TACROLIMUS ANHYDROUS
     Dosage: 0.6 MG, UNK
     Route: 048
     Dates: start: 20141008, end: 20141128
  57. PROGRAF [Suspect]
     Active Substance: TACROLIMUS\TACROLIMUS ANHYDROUS
     Dosage: 1 MG, UNK
     Route: 048
     Dates: start: 20161224, end: 20161230
  58. DIOVAN [Concomitant]
     Active Substance: VALSARTAN
     Indication: PROPHYLAXIS
     Dosage: 160 MG, UNK
     Route: 048
     Dates: start: 20071016
  59. NESINA [Concomitant]
     Active Substance: ALOGLIPTIN BENZOATE
     Dosage: 25 MG, UNK
     Route: 048
     Dates: start: 20110715, end: 20161226
  60. ZYLORIC [Concomitant]
     Active Substance: ALLOPURINOL
     Indication: HYPERURICAEMIA
     Dosage: 200 MG, UNK
     Route: 048
     Dates: start: 20090827
  61. METGLUCO [Concomitant]
     Active Substance: METFORMIN HYDROCHLORIDE
     Indication: DIABETES MELLITUS
     Dosage: 2250 MG, UNK
     Route: 048
     Dates: start: 20130416, end: 20161226
  62. AMARYL [Concomitant]
     Active Substance: GLIMEPIRIDE
     Dosage: 1 MG, UNK
     Route: 048
     Dates: start: 20161220, end: 20161226
  63. NOVORAPID [Concomitant]
     Active Substance: INSULIN ASPART
     Indication: DIABETES MELLITUS
     Dosage: Q.S.
     Route: 058
     Dates: start: 20161220, end: 20161229
  64. CERTICAN [Suspect]
     Active Substance: EVEROLIMUS
     Dosage: 1.25 MG, UNK
     Route: 048
     Dates: start: 20121112
  65. CERTICAN [Suspect]
     Active Substance: EVEROLIMUS
     Dosage: 1.25 MG, QD
     Route: 048
     Dates: start: 20161215, end: 20161219
  66. PROGRAF [Suspect]
     Active Substance: TACROLIMUS\TACROLIMUS ANHYDROUS
     Dosage: 0.9 MG, UNK
     Route: 048
     Dates: start: 20170119
  67. MYCOPHENOLATE [Concomitant]
     Active Substance: MYCOPHENOLIC ACID
     Indication: IMMUNOSUPPRESSANT DRUG THERAPY
     Dosage: 3000 MG, UNK
     Route: 048
     Dates: start: 20100806, end: 20100921
  68. AIMIX [Concomitant]
     Active Substance: AMLODIPINE BESYLATE\IRBESARTAN
     Indication: BLOOD PRESSURE ABNORMAL
     Dosage: 1 DF, UNK
     Route: 048
     Dates: start: 20140321
  69. AMARYL [Concomitant]
     Active Substance: GLIMEPIRIDE
     Dosage: 1 MG, UNK
     Route: 048
     Dates: start: 20161231

REACTIONS (2)
  - Transitional cell carcinoma [Not Recovered/Not Resolved]
  - Coronary artery stenosis [Recovering/Resolving]

NARRATIVE: CASE EVENT DATE: 20141205
